FAERS Safety Report 12083461 (Version 1)
Quarter: 2016Q1

REPORT INFORMATION
  Report Type: Spontaneous
  Country: CA (occurrence: CA)
  Receive Date: 20160217
  Receipt Date: 20160217
  Transmission Date: 20160526
  Serious: Yes (Hospitalization, Disabling)
  Sender: FDA-Public Use
  Company Number: CA-PFIZER INC-2016078517

PATIENT
  Age: 76 Year
  Sex: Male
  Weight: 67.12 kg

DRUGS (16)
  1. RISEDRONATE [Concomitant]
     Active Substance: RISEDRONATE SODIUM
  2. SILDENAFIL. [Concomitant]
     Active Substance: SILDENAFIL
  3. HYDROMORPHONE [Concomitant]
     Active Substance: HYDROMORPHONE
  4. LORAZEPAM. [Concomitant]
     Active Substance: LORAZEPAM
  5. DILANTIN [Interacting]
     Active Substance: PHENYTOIN
     Dosage: 300 MG, 3 TIMES WEEKLY
     Route: 048
  6. PRADAXA [Interacting]
     Active Substance: DABIGATRAN ETEXILATE MESYLATE
     Indication: CEREBROVASCULAR ACCIDENT PROPHYLAXIS
     Dosage: 110 MG, 2X/DAY
     Route: 048
  7. ATORVASTATIN [Concomitant]
     Active Substance: ATORVASTATIN
  8. EZETROL [Concomitant]
     Active Substance: EZETIMIBE
  9. BETAMETHASONE. [Concomitant]
     Active Substance: BETAMETHASONE
  10. COENZYME Q10 [Concomitant]
     Active Substance: UBIDECARENONE
  11. HYOSCINE [Concomitant]
     Active Substance: SCOPOLAMINE
  12. MULTIVITAMINS [Concomitant]
     Active Substance: VITAMINS
  13. TESTOSTERONE. [Concomitant]
     Active Substance: TESTOSTERONE
  14. PRADAXA [Interacting]
     Active Substance: DABIGATRAN ETEXILATE MESYLATE
     Indication: ATRIAL FIBRILLATION
  15. CALTRATE 600+D [Concomitant]
  16. DILANTIN [Suspect]
     Active Substance: PHENYTOIN
     Indication: SEIZURE
     Dosage: 400 MG, 4 TIMES WEEKLY
     Route: 048

REACTIONS (5)
  - Cerebrovascular accident [Recovered/Resolved with Sequelae]
  - Deafness [Recovered/Resolved with Sequelae]
  - Drug interaction [Recovered/Resolved with Sequelae]
  - Cerebral infarction [Recovered/Resolved with Sequelae]
  - Tinnitus [Recovered/Resolved with Sequelae]
